FAERS Safety Report 16169717 (Version 2)
Quarter: 2019Q2

REPORT INFORMATION
  Report Type: Spontaneous
  Country: US (occurrence: US)
  Receive Date: 20190408
  Receipt Date: 20190506
  Transmission Date: 20190711
  Serious: Yes (Hospitalization)
  Sender: FDA-Public Use
  Company Number: US-JNJFOC-20190404610

PATIENT
  Age: 68 Year
  Sex: Male

DRUGS (1)
  1. STELARA [Suspect]
     Active Substance: USTEKINUMAB
     Indication: PSORIASIS
     Route: 058
     Dates: start: 20140218

REACTIONS (15)
  - Pulmonary hypertension [Unknown]
  - Neutrophilia [Unknown]
  - Renal mass [Unknown]
  - Hiatus hernia [Unknown]
  - Anxiety [Unknown]
  - Pneumonia [Unknown]
  - Cardiac failure congestive [Unknown]
  - Decreased appetite [Unknown]
  - Acute kidney injury [Unknown]
  - Insomnia [Unknown]
  - Atrial fibrillation [Unknown]
  - Hepatocellular carcinoma [Not Recovered/Not Resolved]
  - Fatigue [Unknown]
  - Chronic obstructive pulmonary disease [Recovering/Resolving]
  - Thrombocytosis [Unknown]

NARRATIVE: CASE EVENT DATE: 20181022
